FAERS Safety Report 7601556-8 (Version None)
Quarter: 2011Q2

REPORT INFORMATION
  Report Type: 
  Country: None (occurrence: None)
  Receive Date: 20110629
  Receipt Date: 20100514
  Transmission Date: 20111010
  Serious: Yes (Other)
  Sender: FDA-Public Use
  Company Number: 703741

PATIENT
  Sex: Male

DRUGS (1)
  1. KLONOPIN [Suspect]
     Indication: PRODUCT USED FOR UNKNOWN INDICATION
     Dosage: 1 MG 3 PER 1 DAY, ORAL
     Route: 048
     Dates: start: 19920101, end: 19980101

REACTIONS (1)
  - WITHDRAWAL SYNDROME [None]
